FAERS Safety Report 25251486 (Version 4)
Quarter: 2025Q2

REPORT INFORMATION
  Report Type: Other
  Country: US (occurrence: US)
  Receive Date: 20250429
  Receipt Date: 20250519
  Transmission Date: 20250717
  Serious: No
  Sender: TRAVERE THERAPEUTICS
  Company Number: US-TRAVERE-2025TVT00406

PATIENT
  Sex: Male

DRUGS (3)
  1. FILSPARI [Suspect]
     Active Substance: SPARSENTAN
     Indication: IgA nephropathy
     Route: 048
     Dates: start: 20250320
  2. FILSPARI [Suspect]
     Active Substance: SPARSENTAN
     Route: 048
  3. LISINOPRIL [Suspect]
     Active Substance: LISINOPRIL
     Indication: Hypertension
     Route: 048

REACTIONS (7)
  - Hypotension [Unknown]
  - Sleep disorder [Unknown]
  - Hypertension [Unknown]
  - Contraindicated product administered [Unknown]
  - Pruritus [Recovering/Resolving]
  - Contusion [None]
  - Hypersensitivity [Unknown]
